FAERS Safety Report 14987593 (Version 2)
Quarter: 2018Q3

REPORT INFORMATION
  Report Type: Spontaneous
  Country: FI (occurrence: FI)
  Receive Date: 20180608
  Receipt Date: 20180715
  Transmission Date: 20181010
  Serious: Yes (Other)
  Sender: FDA-Public Use
  Company Number: PHHY2018FI017191

PATIENT
  Sex: Female

DRUGS (3)
  1. DOCETAXEL. [Suspect]
     Active Substance: DOCETAXEL
     Indication: HER-2 POSITIVE BREAST CANCER
     Dosage: UNK (IN COMBINATION WITH HERCEPTIN AND PERJETA)
     Route: 065
  2. PERJETA [Suspect]
     Active Substance: PERTUZUMAB
     Indication: HER-2 POSITIVE BREAST CANCER
     Dosage: IN COMBINATION WITH HERCEPTIN AND DOCETAXEL
     Route: 065
  3. HERCEPTIN [Suspect]
     Active Substance: TRASTUZUMAB
     Indication: HER-2 POSITIVE BREAST CANCER
     Dosage: UNK (IN COMBINATION WITH PERJETA AND DOCETAXEL)
     Route: 065

REACTIONS (2)
  - Ejection fraction decreased [Unknown]
  - Hypotension [Not Recovered/Not Resolved]
